FAERS Safety Report 16013507 (Version 1)
Quarter: 2019Q1

REPORT INFORMATION
  Report Type: Spontaneous
  Country: US (occurrence: US)
  Receive Date: 20190131
  Receipt Date: 20190131
  Transmission Date: 20190418
  Serious: Yes (Hospitalization)
  Sender: FDA-Public Use
  Company Number: None

PATIENT
  Age: 84 Year
  Sex: Male

DRUGS (1)
  1. FLUDROCORTISONE [Suspect]
     Active Substance: FLUDROCORTISONE
     Indication: ORTHOSTATIC HYPOTENSION
     Dosage: ?          OTHER DOSE:0.05MG;?
     Route: 048
     Dates: start: 20181211, end: 20181219

REACTIONS (3)
  - Dyspnoea [None]
  - Oedema [None]
  - Weight increased [None]

NARRATIVE: CASE EVENT DATE: 20181219
